FAERS Safety Report 7970764-9 (Version None)
Quarter: 2011Q4

REPORT INFORMATION
  Report Type: 
  Country: None (occurrence: None)
  Receive Date: 20111122
  Receipt Date: 20110816
  Transmission Date: 20120403
  Serious: No
  Sender: FDA-Public Use
  Company Number: PHEH2011US01801

PATIENT
  Age: 49 Year
  Sex: Female

DRUGS (5)
  1. DETROL [Concomitant]
  2. LISINOPRIL [Concomitant]
  3. AMANTADINE HCL [Concomitant]
  4. GILENYA [Suspect]
     Indication: MULTIPLE SCLEROSIS
     Dosage: 0.5 MG/ DAILY, ORAL
     Route: 048
     Dates: start: 20110120
  5. MULTIVITAMINS (ASCORBIC ACID, ERGOCALCIFEROL, FOLIC ACID, NICOTINAMIDE [Concomitant]

REACTIONS (1)
  - BLISTER [None]
